FAERS Safety Report 14923385 (Version 1)
Quarter: 2018Q2

REPORT INFORMATION
  Report Type: Report from Study
  Country: CN (occurrence: CN)
  Receive Date: 20180522
  Receipt Date: 20180522
  Transmission Date: 20180711
  Serious: Yes (Death)
  Sender: FDA-Public Use
  Company Number: CN-INCYTE CORPORATION-2018IN004678

PATIENT

DRUGS (1)
  1. JAKAVI [Suspect]
     Active Substance: RUXOLITINIB
     Indication: PROGRESSIVE MASSIVE FIBROSIS
     Dosage: 5 MG, BID
     Route: 048
     Dates: start: 20171110

REACTIONS (1)
  - Death [Fatal]
